FAERS Safety Report 4713052-6 (Version None)
Quarter: 2005Q3

REPORT INFORMATION
  Report Type: 
  Country: None (occurrence: None)
  Receive Date: 20050701
  Receipt Date: 20040610
  Transmission Date: 20060218
  Serious: Yes (Death)
  Sender: FDA-Public Use
  Company Number: 2004048325

PATIENT
  Age: 77 Year
  Sex: Male
  Weight: 76.2043 kg

DRUGS (9)
  1. ZOLOFT [Suspect]
     Indication: ANXIETY
     Dosage: 25 MG (1 IN 1 D), ORAL
     Route: 048
     Dates: start: 20000212
  2. CLONAZEPAM [Concomitant]
  3. ALBUTEROL SULFATE HFA [Concomitant]
  4. SALMETEROL XINAFOATE (SALMETEROL XINAFOATE) [Concomitant]
  5. SINVASTATIN (SIMVASTATIN) [Concomitant]
  6. THEOPHYLLINE [Concomitant]
  7. AMLODIPINE [Concomitant]
  8. ALPRAZOLAM [Concomitant]
  9. TRIAMCINOLONE ACETONIDE [Concomitant]

REACTIONS (1)
  - COMPLETED SUICIDE [None]
